FAERS Safety Report 6170784-3 (Version None)
Quarter: 2009Q2

REPORT INFORMATION
  Report Type: 
  Country: None (occurrence: None)
  Receive Date: 20090428
  Receipt Date: 20090416
  Transmission Date: 20091009
  Serious: Yes (Other)
  Sender: FDA-Public Use
  Company Number: US-AMGEN-US150585

PATIENT
  Sex: Male

DRUGS (1)
  1. ENBREL [Suspect]
     Indication: PSORIASIS
     Dates: start: 20040501, end: 20050501

REACTIONS (10)
  - ACTIVITIES OF DAILY LIVING IMPAIRED [None]
  - ALOPECIA TOTALIS [None]
  - ALOPECIA UNIVERSALIS [None]
  - AORTIC STENOSIS [None]
  - AORTIC VALVE INCOMPETENCE [None]
  - CONNECTIVE TISSUE DISORDER [None]
  - DEPRESSION [None]
  - MENTAL DISORDER [None]
  - NASOPHARYNGITIS [None]
  - STRESS [None]
